FAERS Safety Report 10056364 (Version 1)
Quarter: 2014Q2

REPORT INFORMATION
  Report Type: Spontaneous
  Country: FR (occurrence: FR)
  Receive Date: 20140403
  Receipt Date: 20140403
  Transmission Date: 20141212
  Serious: Yes (Other)
  Sender: FDA-Public Use
  Company Number: FR-ACTAVIS-2014-06238

PATIENT
  Age: 23 Year
  Sex: Female

DRUGS (7)
  1. IBUPROFENE ARROW [Suspect]
     Indication: TOOTHACHE
     Dosage: 200 MG, (3 DF)
     Route: 048
     Dates: start: 20140228, end: 20140228
  2. IBUPROFEN [Suspect]
     Indication: PRODUCT USED FOR UNKNOWN INDICATION
     Dosage: 2400 MG OVER 10H (1 DF 6 TIMES)
     Route: 048
     Dates: start: 20140228, end: 20140228
  3. AMOXICILLIN CLAVULANIC ACID [Concomitant]
     Indication: PRODUCT USED FOR UNKNOWN INDICATION
     Dosage: 500 MG/62.5, 2 TABLETS
     Route: 065
  4. SPIRAMYCINE BIOGARAN [Concomitant]
     Indication: PRODUCT USED FOR UNKNOWN INDICATION
     Dosage: 100 MG, UNK
     Route: 065
  5. LAMALINE                           /01708901/ [Concomitant]
     Indication: PRODUCT USED FOR UNKNOWN INDICATION
     Dosage: 2 CAPSULES, UNK
     Route: 065
  6. DAFALGAN [Concomitant]
     Indication: PRODUCT USED FOR UNKNOWN INDICATION
     Dosage: 1 G, 1 TABLET, UNK
     Route: 065
  7. TRAMADOL [Concomitant]
     Indication: PRODUCT USED FOR UNKNOWN INDICATION
     Dosage: 100 MG
     Route: 065

REACTIONS (4)
  - Overdose [Recovered/Resolved]
  - Abdominal pain upper [Recovered/Resolved]
  - Incorrect drug administration rate [Recovered/Resolved]
  - Medication error [Recovered/Resolved]
